FAERS Safety Report 8029620-2 (Version None)
Quarter: 2012Q1

REPORT INFORMATION
  Report Type: 
  Country: None (occurrence: None)
  Receive Date: 20120109
  Receipt Date: 20120105
  Transmission Date: 20120608
  Serious: No
  Sender: FDA-Public Use
  Company Number: US-PFIZER INC-2012004405

PATIENT
  Sex: Female
  Weight: 69.388 kg

DRUGS (3)
  1. LIPITOR [Suspect]
     Indication: BLOOD CHOLESTEROL INCREASED
     Dosage: 10 MG, DAILY
     Route: 048
     Dates: start: 20110101, end: 20110101
  2. LIPITOR [Suspect]
     Dosage: UNK
     Route: 048
     Dates: start: 20110101, end: 20111201
  3. METFORMIN [Concomitant]
     Indication: DIABETES MELLITUS
     Dosage: UNK
     Dates: end: 20111201

REACTIONS (3)
  - MUSCLE SPASMS [None]
  - NAUSEA [None]
  - BLOOD GLUCOSE INCREASED [None]
